FAERS Safety Report 8534904-5 (Version None)
Quarter: 2012Q3

REPORT INFORMATION
  Report Type: 
  Country: None (occurrence: None)
  Receive Date: 20120724
  Receipt Date: 20120711
  Transmission Date: 20120928
  Serious: Yes (Hospitalization, Other)
  Sender: FDA-Public Use
  Company Number: PL-ROCHE-1087413

PATIENT
  Age: 43 Year
  Sex: Male

DRUGS (5)
  1. VINCRISTINE [Suspect]
     Indication: DIFFUSE LARGE B-CELL LYMPHOMA
     Dates: start: 20080206, end: 20110310
  2. PREDNISONE [Suspect]
     Indication: DIFFUSE LARGE B-CELL LYMPHOMA
     Dates: start: 20080206, end: 20110310
  3. DOXORUBICIN HYDROCHLORIDE [Suspect]
     Indication: DIFFUSE LARGE B-CELL LYMPHOMA
     Dates: start: 20080206, end: 20110310
  4. MABTHERA [Suspect]
     Indication: DIFFUSE LARGE B-CELL LYMPHOMA
     Dates: start: 20080227, end: 20110310
  5. CYCLOPHOSPHAMIDE [Suspect]
     Indication: DIFFUSE LARGE B-CELL LYMPHOMA
     Dates: start: 20080206, end: 20110310

REACTIONS (13)
  - HYPOGLYCAEMIA [None]
  - GRAND MAL CONVULSION [None]
  - LIVER INJURY [None]
  - PHARYNGITIS [None]
  - BLOOD PRESSURE INCREASED [None]
  - GASTROINTESTINAL INFLAMMATION [None]
  - LUNG DISORDER [None]
  - DERMATITIS ALLERGIC [None]
  - RHINITIS ALLERGIC [None]
  - HEPATOMEGALY [None]
  - TACHYCARDIA [None]
  - PSEUDOMONAS INFECTION [None]
  - NEOPLASM MALIGNANT [None]
